FAERS Safety Report 9014617 (Version 1)
Quarter: 2013Q1

REPORT INFORMATION
  Report Type: Spontaneous
  Country: GB (occurrence: GB)
  Receive Date: 20130115
  Receipt Date: 20130115
  Transmission Date: 20140127
  Serious: Yes (Hospitalization)
  Sender: FDA-Public Use
  Company Number: GB-GILEAD-2012-0055234

PATIENT
  Sex: Female

DRUGS (2)
  1. VIREAD [Suspect]
     Indication: HEPATITIS B
     Dosage: 245 MG, UNK
     Route: 048
     Dates: start: 201203
  2. FOLIC ACID [Concomitant]
     Indication: PREGNANCY

REACTIONS (1)
  - Premature delivery [Recovered/Resolved]
